FAERS Safety Report 7601393-4 (Version None)
Quarter: 2011Q3

REPORT INFORMATION
  Report Type: 
  Country: None (occurrence: None)
  Receive Date: 20110711
  Receipt Date: 20110705
  Transmission Date: 20111222
  Serious: Yes (Life-Threatening, Hospitalization)
  Sender: FDA-Public Use
  Company Number: US-ASTRAZENECA-2011SE40077

PATIENT
  Age: 25 Year
  Sex: Female
  Weight: 54.4 kg

DRUGS (3)
  1. ADDERALL 10 [Concomitant]
  2. SEROQUEL XR [Suspect]
     Route: 048
  3. KLONOPIN [Concomitant]

REACTIONS (4)
  - PNEUMONIA [None]
  - ASPIRATION [None]
  - ACUTE RESPIRATORY DISTRESS SYNDROME [None]
  - MENTAL DISORDER [None]
